FAERS Safety Report 26026115 (Version 3)
Quarter: 2025Q4

REPORT INFORMATION
  Report Type: Spontaneous
  Country: US (occurrence: US)
  Receive Date: 20251111
  Receipt Date: 20251126
  Transmission Date: 20260117
  Serious: Yes (Hospitalization, Other)
  Sender: MAYNE
  Company Number: US-DUCHESNAY INC-2025MYN000572

PATIENT

DRUGS (1)
  1. ANNOVERA [Suspect]
     Active Substance: ETHINYL ESTRADIOL\SEGESTERONE ACETATE
     Indication: Contraception
     Dosage: 0.15MG /0.013MG
     Route: 067
     Dates: start: 202405

REACTIONS (5)
  - Cerebral haemorrhage [Recovered/Resolved]
  - Cerebral venous sinus thrombosis [Recovered/Resolved]
  - Nausea [Recovered/Resolved]
  - Vomiting [Recovered/Resolved]
  - Contraindicated product administered [Unknown]

NARRATIVE: CASE EVENT DATE: 20250801
